FAERS Safety Report 8273838-0 (Version None)
Quarter: 2012Q2

REPORT INFORMATION
  Report Type: 
  Country: None (occurrence: None)
  Receive Date: 20120411
  Receipt Date: 20120322
  Transmission Date: 20120825
  Serious: No
  Sender: FDA-Public Use
  Company Number: US-ROXANE LABORATORIES, INC.-2012-RO-00893RO

PATIENT
  Age: 57 Year
  Sex: Female

DRUGS (1)
  1. MORPHINE [Suspect]

REACTIONS (2)
  - URTICARIA [None]
  - RASH [None]
